FAERS Safety Report 7217139-8 (Version None)
Quarter: 2011Q1

REPORT INFORMATION
  Report Type: 
  Country: None (occurrence: None)
  Receive Date: 20110110
  Receipt Date: 20110106
  Transmission Date: 20110831
  Serious: Yes (Hospitalization)
  Sender: FDA-Public Use
  Company Number: FR-BRISTOL-MYERS SQUIBB COMPANY-15454010

PATIENT
  Age: 82 Year
  Sex: Female

DRUGS (6)
  1. CORTANCYL [Concomitant]
     Dates: start: 20100706
  2. FLUINDIONE [Concomitant]
     Dates: start: 20050101
  3. METOJECT [Suspect]
     Indication: RHEUMATOID ARTHRITIS
     Dates: start: 20100831
  4. AMIODARONE [Concomitant]
     Dates: start: 20050101
  5. ABATACEPT [Suspect]
     Indication: RHEUMATOID ARTHRITIS
     Dosage: 07DEC2010 TO 20DEC2010 (500MG) 21DEC2010 TO ONG (750MG)
     Route: 042
     Dates: start: 20101207
  6. FOLIC ACID [Concomitant]
     Dates: start: 20100521

REACTIONS (1)
  - ATRIAL FIBRILLATION [None]
